FAERS Safety Report 7986579-1 (Version None)
Quarter: 2011Q4

REPORT INFORMATION
  Report Type: 
  Country: None (occurrence: None)
  Receive Date: 20111216
  Receipt Date: 20110727
  Transmission Date: 20120403
  Serious: No
  Sender: FDA-Public Use
  Company Number: US-BRISTOL-MYERS SQUIBB COMPANY-15929813

PATIENT
  Sex: Male

DRUGS (2)
  1. EFFEXOR [Suspect]
  2. ABILIFY [Suspect]

REACTIONS (2)
  - VISUAL IMPAIRMENT [None]
  - SEXUAL DYSFUNCTION [None]
